FAERS Safety Report 9884397 (Version 1)
Quarter: 2014Q1

REPORT INFORMATION
  Report Type: Spontaneous
  Country: None (occurrence: US)
  Receive Date: 20140210
  Receipt Date: 20140210
  Transmission Date: 20141002
  Serious: No
  Sender: FDA-Public Use
  Company Number: US-ALLERGAN-1315874US

PATIENT
  Sex: Female

DRUGS (1)
  1. BOTOX [Suspect]
     Indication: MIGRAINE
     Dosage: 200 UNITS, SINGLE
     Route: 030
     Dates: start: 201209, end: 201209

REACTIONS (7)
  - Eyelid ptosis [Unknown]
  - Diplopia [Recovered/Resolved]
  - Middle insomnia [Unknown]
  - Off label use [Unknown]
  - Myocardial infarction [Unknown]
  - Muscle spasms [Recovered/Resolved]
  - Neck pain [Unknown]
